FAERS Safety Report 8621702-7 (Version None)
Quarter: 2012Q3

REPORT INFORMATION
  Report Type: 
  Country: None (occurrence: None)
  Receive Date: 20120821
  Receipt Date: 20120821
  Transmission Date: 20120928
  Serious: Yes (Other)
  Sender: FDA-Public Use
  Company Number: None

PATIENT
  Age: 87 Year
  Sex: Female

DRUGS (1)
  1. ULTRAVIST 370 [Suspect]

REACTIONS (3)
  - PULMONARY OEDEMA [None]
  - CONTRAST MEDIA ALLERGY [None]
  - WHEEZING [None]
